FAERS Safety Report 23402817 (Version 1)
Quarter: 2024Q1

REPORT INFORMATION
  Report Type: Report from Study
  Country: EG (occurrence: EG)
  Receive Date: 20240115
  Receipt Date: 20240115
  Transmission Date: 20240410
  Serious: Yes (Other)
  Sender: FDA-Public Use
  Company Number: EG-SANDOZ-SDZ2024EG002713

PATIENT
  Sex: Female
  Weight: 28 kg

DRUGS (1)
  1. OMNITROPE [Suspect]
     Active Substance: SOMATROPIN
     Indication: Growth hormone deficiency
     Dosage: 18 IU, SIMCE 10-12 MONTHS AGO
     Route: 058

REACTIONS (5)
  - Abdominal pain upper [Recovering/Resolving]
  - Injection site discolouration [Recovering/Resolving]
  - Product availability issue [Unknown]
  - Drug administered in wrong device [Unknown]
  - Product substitution issue [Unknown]
